FAERS Safety Report 7505498-8 (Version None)
Quarter: 2011Q2

REPORT INFORMATION
  Report Type: 
  Country: None (occurrence: None)
  Receive Date: 20110526
  Receipt Date: 20110519
  Transmission Date: 20111010
  Serious: Yes (Hospitalization)
  Sender: FDA-Public Use
  Company Number: US-BRISTOL-MYERS SQUIBB COMPANY-15630429

PATIENT
  Age: 59 Year
  Sex: Male

DRUGS (4)
  1. LEVOTHROID [Concomitant]
     Dates: start: 20100101
  2. INDOCIN [Concomitant]
     Dates: start: 19940115
  3. IPILIMUMAB [Suspect]
     Indication: MALIGNANT MELANOMA
     Dosage: LAST DOSE ON 02-MAR-2011,197.7 MG
     Route: 042
     Dates: start: 20110119, end: 20110302
  4. KEPPRA [Concomitant]
     Dates: start: 20110106

REACTIONS (1)
  - BRAIN OEDEMA [None]
